FAERS Safety Report 8907753 (Version 1)
Quarter: 2012Q4

REPORT INFORMATION
  Report Type: 
  Country: US (occurrence: US)
  Receive Date: 20121113
  Receipt Date: 20121113
  Transmission Date: 20130627
  Serious: No
  Sender: FDA-Public Use
  Company Number: US-AMGEN-USASP2012010417

PATIENT
  Age: 72 Year
  Sex: Male

DRUGS (11)
  1. ENBREL [Suspect]
     Indication: PRODUCT USED FOR UNKNOWN INDICATION
     Dosage: 25 mg, qwk
  2. SINGULAIR [Concomitant]
     Dosage: 10 mg, UNK
  3. FUROSEMIDE [Concomitant]
     Dosage: 20 mg, UNK
  4. METHOTREXATE [Concomitant]
     Dosage: 2.5 mg, UNK
  5. AVAPRO [Concomitant]
     Dosage: 150 mg, UNK
  6. GABAPENTIN [Concomitant]
     Dosage: 100 mg, UNK
  7. SYMBICORT [Concomitant]
     Dosage: UNK
  8. METHYLPRED [Concomitant]
     Dosage: 4 mg, UNK
  9. CRESTOR [Concomitant]
     Dosage: 10 mg, UNK
  10. SPIRIVA HANDIHALER [Concomitant]
     Dosage: UNK
  11. POTASSIUM [Concomitant]
     Dosage: 75 mg, UNK

REACTIONS (1)
  - Urinary tract infection [Unknown]
